FAERS Safety Report 24667280 (Version 1)
Quarter: 2024Q4

REPORT INFORMATION
  Report Type: Spontaneous
  Country: JP (occurrence: JP)
  Receive Date: 20241126
  Receipt Date: 20241126
  Transmission Date: 20250114
  Serious: Yes (Hospitalization, Disabling, Other)
  Sender: BRISTOL-MYERS SQUIBB COMPANY
  Company Number: JP-ONO-2024JP023798

PATIENT
  Age: 65 Year
  Sex: Male
  Weight: 77.2 kg

DRUGS (4)
  1. OPDIVO [Suspect]
     Active Substance: NIVOLUMAB
     Indication: Transitional cell carcinoma
     Dosage: 240 MG
     Route: 041
     Dates: start: 20231116, end: 20240919
  2. IMEGLIMIN HYDROCHLORIDE [Concomitant]
     Active Substance: IMEGLIMIN HYDROCHLORIDE
     Indication: Product used for unknown indication
     Dosage: UNK
     Route: 048
  3. GLICLAZIDE [Concomitant]
     Active Substance: GLICLAZIDE
     Indication: Product used for unknown indication
     Dosage: UNK
     Route: 048
     Dates: end: 20241004
  4. KERENDIA [Concomitant]
     Active Substance: FINERENONE
     Indication: Product used for unknown indication
     Dosage: UNK
     Route: 048
     Dates: end: 20241004

REACTIONS (7)
  - Thrombotic microangiopathy [Not Recovered/Not Resolved]
  - Glomerulonephritis [Unknown]
  - Acute kidney injury [Unknown]
  - Anaemia [Unknown]
  - Platelet count decreased [Unknown]
  - Blood lactate dehydrogenase increased [Unknown]
  - Dizziness [Unknown]

NARRATIVE: CASE EVENT DATE: 20240919
